FAERS Safety Report 9486442 (Version 1)
Quarter: 2013Q3

REPORT INFORMATION
  Report Type: Spontaneous
  Country: US (occurrence: None)
  Receive Date: 20130827
  Receipt Date: 20130827
  Transmission Date: 20140515
  Serious: Yes (Other)
  Sender: FDA-Public Use
  Company Number: None

PATIENT
  Age: 37 Year
  Sex: Female
  Weight: 68.04 kg

DRUGS (4)
  1. MIRENA [Suspect]
  2. SINGULAIR 10 MG [Suspect]
  3. CRESTOR [Concomitant]
  4. ZYRTEC [Suspect]

REACTIONS (1)
  - Alopecia [None]
